FAERS Safety Report 12072260 (Version 4)
Quarter: 2016Q3

REPORT INFORMATION
  Report Type: Report from Study
  Country: CA (occurrence: CA)
  Receive Date: 20160212
  Receipt Date: 20160906
  Transmission Date: 20161109
  Serious: Yes (Hospitalization, Other)
  Sender: FDA-Public Use
  Company Number: PHHY2011CA05682

PATIENT
  Age: 47 Year
  Sex: Male

DRUGS (1)
  1. SANDOSTATIN LAR DEPOT [Suspect]
     Active Substance: OCTREOTIDE ACETATE
     Indication: CARCINOID TUMOUR
     Dosage: 30 MG, TIW (EVERY 3 WEEKS)
     Route: 030
     Dates: start: 20040526

REACTIONS (8)
  - Blood pressure systolic increased [Unknown]
  - Blood pressure increased [Unknown]
  - Inappropriate schedule of drug administration [Unknown]
  - Abdominal pain upper [Unknown]
  - Bone neoplasm [Unknown]
  - Headache [Unknown]
  - Pancreatitis [Unknown]
  - Nausea [Unknown]

NARRATIVE: CASE EVENT DATE: 20040526
